FAERS Safety Report 4660338-X (Version None)
Quarter: 2005Q2

REPORT INFORMATION
  Report Type: 
  Country: None (occurrence: None)
  Receive Date: 20050511
  Receipt Date: 20050511
  Transmission Date: 20051028
  Serious: Yes (Hospitalization)
  Sender: FDA-Public Use
  Company Number: None

PATIENT
  Age: 63 Year
  Sex: Male
  Weight: 90 kg

DRUGS (13)
  1. MORPHINE SULFATE [Suspect]
     Indication: ANXIETY
     Dosage: 1MG  IV X 2
     Route: 042
     Dates: start: 20050119
  2. MORPHINE SULFATE [Suspect]
     Indication: PAIN
     Dosage: 1MG  IV X 2
     Route: 042
     Dates: start: 20050119
  3. CARVEDILOL [Suspect]
     Indication: CARDIAC FAILURE
     Dosage: 6.25 BID
     Dates: start: 20050119
  4. ASPIRIN [Concomitant]
  5. .. [Concomitant]
  6. CEFTRIAXONE [Concomitant]
  7. CLOPIDOGREL BISULFATE [Concomitant]
  8. FUROSEMIDE [Concomitant]
  9. HEPARIN [Concomitant]
  10. LOVASTATIN [Concomitant]
  11. RANITIDINE [Concomitant]
  12. TEMAZEPAM [Concomitant]
  13. TRAZADONE [Concomitant]

REACTIONS (2)
  - HYPOTENSION [None]
  - SINUS BRADYCARDIA [None]
